FAERS Safety Report 16216900 (Version 1)
Quarter: 2019Q2

REPORT INFORMATION
  Report Type: Report from Study
  Country: US (occurrence: US)
  Receive Date: 20190419
  Receipt Date: 20190419
  Transmission Date: 20190711
  Serious: Yes (Death, Life-Threatening, Hospitalization, Other)
  Sender: FDA-Public Use
  Company Number: US-TEVA-2019-US-1038565

PATIENT
  Age: 8 Month
  Sex: Male

DRUGS (11)
  1. RIBAVIRIN. [Suspect]
     Active Substance: RIBAVIRIN
     Indication: RHINOVIRUS INFECTION
     Route: 048
  2. IV IMMUNE GLOBULIN [Suspect]
     Active Substance: HUMAN IMMUNOGLOBULIN G
     Indication: CYTOMEGALOVIRUS VIRAEMIA
     Route: 042
  3. TACROLIMUS. [Suspect]
     Active Substance: TACROLIMUS
     Indication: IMMUNOSUPPRESSANT DRUG THERAPY
     Route: 065
  4. FLUDARABINE [Suspect]
     Active Substance: FLUDARABINE PHOSPHATE
     Indication: CHEMOTHERAPY
     Route: 065
  5. MYCOPHENOLATE-MOFETIL [Suspect]
     Active Substance: MYCOPHENOLATE MOFETIL
     Indication: IMMUNOSUPPRESSANT DRUG THERAPY
     Route: 065
  6. ALEMTUZUMAB [Suspect]
     Active Substance: ALEMTUZUMAB
     Indication: CHEMOTHERAPY
     Route: 065
  7. THIOTEPA. [Suspect]
     Active Substance: THIOTEPA
     Indication: CHEMOTHERAPY
     Route: 065
  8. MELPHALAN. [Suspect]
     Active Substance: MELPHALAN
     Indication: CHEMOTHERAPY
     Route: 065
  9. RIBAVIRIN. [Suspect]
     Active Substance: RIBAVIRIN
     Indication: RHINOVIRUS INFECTION
     Dosage: MULTIPLE COURSES OF RIBAVIRIN
     Route: 048
  10. CIDOFOVIR. [Suspect]
     Active Substance: CIDOFOVIR
     Indication: CYTOMEGALOVIRUS VIRAEMIA
     Route: 042
  11. HYDROXYUREA. [Suspect]
     Active Substance: HYDROXYUREA
     Indication: CHEMOTHERAPY
     Route: 065

REACTIONS (13)
  - Candida infection [Unknown]
  - Aspartate aminotransferase increased [Unknown]
  - Immune reconstitution inflammatory syndrome [Fatal]
  - Escherichia infection [Unknown]
  - Stenotrophomonas infection [Unknown]
  - Parainfluenzae virus infection [Unknown]
  - Lymphopenia [Unknown]
  - Alanine aminotransferase increased [Unknown]
  - Cardio-respiratory arrest [Fatal]
  - Rhinovirus infection [Unknown]
  - Neutropenia [Unknown]
  - Enterococcal infection [Unknown]
  - Serratia infection [Unknown]
